FAERS Safety Report 16882935 (Version 1)
Quarter: 2019Q4

REPORT INFORMATION
  Report Type: Report from Study
  Country: None (occurrence: TR)
  Receive Date: 20191004
  Receipt Date: 20191004
  Transmission Date: 20200122
  Serious: Yes (Hospitalization)
  Sender: FDA-Public Use
  Company Number: TR-ABBVIE-19K-161-2840371-00

PATIENT
  Sex: Male
  Weight: 88 kg

DRUGS (1)
  1. DUODOPA [Suspect]
     Active Substance: CARBIDOPA\LEVODOPA
     Indication: PARKINSON^S DISEASE
     Dosage: MORNING DOSE (ML): 9,00 CONTINUOUS DOSE (ML): 4,50 EXTRA DOSE (ML): 1,00
     Route: 050
     Dates: start: 20180418, end: 2019

REACTIONS (2)
  - Bradykinesia [Not Recovered/Not Resolved]
  - Decubitus ulcer [Not Recovered/Not Resolved]
